FAERS Safety Report 24567945 (Version 2)
Quarter: 2024Q4

REPORT INFORMATION
  Report Type: Spontaneous
  Country: JP (occurrence: JP)
  Receive Date: 20241031
  Receipt Date: 20241119
  Transmission Date: 20250114
  Serious: No
  Sender: NOVARTIS
  Company Number: JP-002147023-NVSJ2024JP012839

PATIENT
  Sex: Male

DRUGS (1)
  1. ENTRESTO [Suspect]
     Active Substance: SACUBITRIL\VALSARTAN
     Indication: Product used for unknown indication
     Dosage: UNK
     Route: 048

REACTIONS (1)
  - Foreign body in respiratory tract [Recovered/Resolved]
